FAERS Safety Report 7831305-X (Version None)
Quarter: 2011Q4

REPORT INFORMATION
  Report Type: 
  Country: None (occurrence: None)
  Receive Date: 20111021
  Receipt Date: 20111013
  Transmission Date: 20120403
  Serious: Yes (Hospitalization, Disabling, Other)
  Sender: FDA-Public Use
  Company Number: US-MERCK-1105USA01487

PATIENT
  Age: 58 Year
  Sex: Female
  Weight: 73 kg

DRUGS (1)
  1. FOSAMAX [Suspect]
     Indication: OSTEOPOROSIS
     Route: 048
     Dates: start: 20000101, end: 20100501

REACTIONS (51)
  - BONE PAIN [None]
  - MENISCUS LESION [None]
  - IMPAIRED HEALING [None]
  - CHONDROMALACIA [None]
  - CHEST PAIN [None]
  - BRONCHITIS [None]
  - EXOSTOSIS [None]
  - BREAST MASS [None]
  - MITRAL VALVE INCOMPETENCE [None]
  - TOOTH FRACTURE [None]
  - TOOTH ABSCESS [None]
  - SINUS DISORDER [None]
  - DEPRESSION [None]
  - PALPITATIONS [None]
  - ORAL TORUS [None]
  - HYPOAESTHESIA ORAL [None]
  - OSTEONECROSIS OF JAW [None]
  - ADENOIDAL DISORDER [None]
  - TONSILLAR DISORDER [None]
  - OVARIAN DISORDER [None]
  - BLOOD CHOLESTEROL INCREASED [None]
  - PATELLOFEMORAL PAIN SYNDROME [None]
  - ORAL INFECTION [None]
  - WEIGHT DECREASED [None]
  - TONGUE DISCOLOURATION [None]
  - HYPERLIPIDAEMIA [None]
  - DENTAL CARIES [None]
  - ARTHRALGIA [None]
  - NERVE INJURY [None]
  - PERIODONTAL DISEASE [None]
  - HYPERTENSION [None]
  - ANXIETY [None]
  - ABDOMINAL PAIN [None]
  - CYSTITIS [None]
  - FUNGAL INFECTION [None]
  - DIVERTICULUM [None]
  - TOOTH DISORDER [None]
  - ABSCESS [None]
  - APPENDIX DISORDER [None]
  - GALLBLADDER DISORDER [None]
  - DRUG HYPERSENSITIVITY [None]
  - CARDIAC DISORDER [None]
  - GASTROOESOPHAGEAL REFLUX DISEASE [None]
  - DIABETES MELLITUS [None]
  - RESTLESS LEGS SYNDROME [None]
  - JOINT EFFUSION [None]
  - ARTHROPATHY [None]
  - UTERINE DISORDER [None]
  - DYSURIA [None]
  - VERTIGO [None]
  - HYPERSENSITIVITY [None]
